FAERS Safety Report 23269883 (Version 1)
Quarter: 2023Q4

REPORT INFORMATION
  Report Type: Spontaneous
  Country: US (occurrence: US)
  Receive Date: 20231207
  Receipt Date: 20231207
  Transmission Date: 20240110
  Serious: Yes (Other)
  Sender: FDA-Public Use
  Company Number: US-ALEMBIC PHARMACUETICALS LIMITED-2023SCAL001167

PATIENT

DRUGS (1)
  1. LEVETIRACETAM [Suspect]
     Active Substance: LEVETIRACETAM
     Indication: Partial seizures
     Dosage: UNK
     Route: 065

REACTIONS (8)
  - Gaze palsy [Unknown]
  - Encephalopathy [Unknown]
  - Bruxism [Recovered/Resolved]
  - Oral discomfort [Recovered/Resolved]
  - Motor dysfunction [Unknown]
  - Mental status changes [Recovering/Resolving]
  - Dyskinesia [Recovered/Resolved]
  - Affect lability [Unknown]
